FAERS Safety Report 21143040 (Version 1)
Quarter: 2022Q3

REPORT INFORMATION
  Report Type: Spontaneous
  Country: CO (occurrence: CO)
  Receive Date: 20220728
  Receipt Date: 20220728
  Transmission Date: 20221027
  Serious: Yes (Death, Other)
  Sender: FDA-Public Use
  Company Number: CO-SA-SAC20220727001583

PATIENT
  Age: 75 Year
  Sex: Female

DRUGS (1)
  1. CABLIVI [Suspect]
     Active Substance: CAPLACIZUMAB-YHDP
     Indication: Thrombotic thrombocytopenic purpura
     Dosage: 10 MG, TOTAL
     Route: 040
     Dates: start: 20220722, end: 20220722

REACTIONS (6)
  - Platelet count decreased [Fatal]
  - Anaemia [Fatal]
  - Bradycardia [Fatal]
  - Disease progression [Fatal]
  - Systemic candida [Fatal]
  - Tracheitis [Fatal]
